FAERS Safety Report 8198488-6 (Version None)
Quarter: 2012Q1

REPORT INFORMATION
  Report Type: 
  Country: None (occurrence: None)
  Receive Date: 20120309
  Receipt Date: 20111230
  Transmission Date: 20120608
  Serious: No
  Sender: FDA-Public Use
  Company Number: US-AMGEN-USASP2011069655

PATIENT
  Sex: Female

DRUGS (12)
  1. ZETIA [Concomitant]
  2. LEVOTHYROXINE SODIUM [Concomitant]
  3. POTASSIUM [Concomitant]
  4. PROLIA [Suspect]
     Indication: OSTEOPOROSIS POSTMENOPAUSAL
     Dosage: 60 MG, Q6MO
     Route: 058
     Dates: start: 20110601
  5. LANTUS [Concomitant]
  6. BENICAR [Concomitant]
  7. METFORMIN HCL [Concomitant]
  8. HUMALOG [Concomitant]
  9. VITAMIN D [Concomitant]
  10. LASIX [Concomitant]
  11. MULTIVITAMIN                       /00097801/ [Concomitant]
  12. TOPROL-XL [Concomitant]

REACTIONS (2)
  - BLOOD CHOLESTEROL INCREASED [None]
  - CYSTITIS [None]
